FAERS Safety Report 6273742-3 (Version None)
Quarter: 2009Q3

REPORT INFORMATION
  Report Type: 
  Country: None (occurrence: None)
  Receive Date: 20090720
  Receipt Date: 20090713
  Transmission Date: 20100115
  Serious: Yes (Other)
  Sender: FDA-Public Use
  Company Number: A0777811B

PATIENT
  Sex: Female
  Weight: 64.9 kg

DRUGS (3)
  1. LAPATINIB [Suspect]
     Dosage: 1500MG PER DAY
     Route: 050
     Dates: start: 20090227
  2. CISPLATIN [Suspect]
     Dosage: 100MGM2 CYCLIC
     Route: 042
     Dates: start: 20090303
  3. RADIOTHERAPY [Suspect]
     Route: 061

REACTIONS (3)
  - OSTEORADIONECROSIS [None]
  - PAIN IN JAW [None]
  - SWELLING FACE [None]
